FAERS Safety Report 5367671-7 (Version None)
Quarter: 2007Q2

REPORT INFORMATION
  Report Type: 
  Country: None (occurrence: None)
  Receive Date: 20070622
  Receipt Date: 20070124
  Transmission Date: 20071010
  Serious: No
  Sender: FDA-Public Use
  Company Number: US-ASTRAZENECA-2007UW01537

PATIENT
  Sex: Female

DRUGS (2)
  1. PULMICORT [Suspect]
     Indication: BRONCHIECTASIS
     Route: 055
     Dates: end: 20061101
  2. PULMICORT [Suspect]
     Route: 055
     Dates: start: 20070122

REACTIONS (2)
  - DYSGEUSIA [None]
  - GLOSSODYNIA [None]
